FAERS Safety Report 4639367-8 (Version None)
Quarter: 2005Q2

REPORT INFORMATION
  Report Type: 
  Country: None (occurrence: None)
  Receive Date: 20050418
  Receipt Date: 20050408
  Transmission Date: 20051028
  Serious: Yes (Hospitalization)
  Sender: FDA-Public Use
  Company Number: ZICO001159

PATIENT
  Age: 55 Year
  Sex: Female
  Weight: 95.2554 kg

DRUGS (23)
  1. PRIALT [Suspect]
     Indication: PAIN
     Dosage: 0.15 MCG/HR INTRATHECAL
     Route: 037
     Dates: start: 20041216, end: 20041228
  2. PROTONIX EC (PANTOPRAZOLE) [Concomitant]
  3. REGLAN [Concomitant]
  4. DIAZIDE (TRIAMTERENE/HCTZ) [Concomitant]
  5. SYNTHROID [Concomitant]
  6. DEMADEX [Concomitant]
  7. ALDACTAZINE (SPIRONOLACTONE) [Concomitant]
  8. ZOCOR [Concomitant]
  9. PREMARIN [Concomitant]
  10. REMERON [Concomitant]
  11. COUMADIN [Concomitant]
  12. NEURONTIN [Concomitant]
  13. ASPIRIN [Concomitant]
  14. K-DUR (POTASSIUM ACETATE) [Concomitant]
  15. POLY-IRON (POLY-IRON) [Concomitant]
  16. MULTIVITAMINS (ERGOCALCIFEROL) [Concomitant]
  17. L-LYSINE (LYSINE) [Concomitant]
  18. CALCIUM/MAGNESIUM/ZINC (CALCIUM/MAGNESIUM/ZINC) [Concomitant]
  19. NITRO-DUR [Concomitant]
  20. ALLEGRA-D (PSEUDOEPHEDRINE HYDROCHLORIDE) [Concomitant]
  21. TYLENOL [Concomitant]
  22. ACTIQ [Concomitant]
  23. ROXANOL (MORPHINE HYDROCHLORIDE) [Concomitant]

REACTIONS (16)
  - CHEST PAIN [None]
  - CHILLS [None]
  - DECREASED APPETITE [None]
  - DIARRHOEA [None]
  - GRAND MAL CONVULSION [None]
  - HEADACHE [None]
  - HYPERTENSION [None]
  - HYPOKALAEMIA [None]
  - INTERNATIONAL NORMALISED RATIO INCREASED [None]
  - NAUSEA [None]
  - OVERDOSE [None]
  - PAIN [None]
  - PAROSMIA [None]
  - PYREXIA [None]
  - VISION BLURRED [None]
  - VISUAL DISTURBANCE [None]
